FAERS Safety Report 22149116 (Version 1)
Quarter: 2023Q1

REPORT INFORMATION
  Report Type: Spontaneous
  Country: CA (occurrence: CA)
  Receive Date: 20230328
  Receipt Date: 20230328
  Transmission Date: 20230418
  Serious: Yes (Other)
  Sender: FDA-Public Use
  Company Number: CA-CELLTRION INC.-2023CA004567

PATIENT

DRUGS (3)
  1. INFLECTRA [Suspect]
     Active Substance: INFLIXIMAB-DYYB
     Indication: Crohn^s disease
     Dosage: 5 MG/KG INDUCTION WEEK 0, 2, 6 THEN MAINTENANCE EVERY 8 WEEKS
     Route: 042
     Dates: start: 20230207
  2. INFLECTRA [Suspect]
     Active Substance: INFLIXIMAB-DYYB
     Dosage: 300 MG (5 MG/KG) WEEK 2 INDUCTION DOSE
     Route: 042
     Dates: start: 20230221
  3. INFLECTRA [Suspect]
     Active Substance: INFLIXIMAB-DYYB
     Dosage: 290 MG (5 MG/KG) ON W6
     Route: 042
     Dates: start: 20230321

REACTIONS (9)
  - COVID-19 [Unknown]
  - Condition aggravated [Unknown]
  - Peripheral venous disease [Unknown]
  - Poor venous access [Unknown]
  - Impatience [Unknown]
  - Crying [Unknown]
  - Pain [Not Recovered/Not Resolved]
  - Stress [Unknown]
  - Nervousness [Unknown]

NARRATIVE: CASE EVENT DATE: 20230221
